FAERS Safety Report 9170173 (Version 2)
Quarter: 2013Q2

REPORT INFORMATION
  Report Type: Report from Study
  Country: NZ (occurrence: NZ)
  Receive Date: 20130319
  Receipt Date: 20130517
  Transmission Date: 20140414
  Serious: Yes (Hospitalization, Other)
  Sender: FDA-Public Use
  Company Number: PHHY2012NZ106836

PATIENT
  Age: 34 Year
  Sex: Male
  Weight: 200 kg

DRUGS (8)
  1. CLOZARIL [Suspect]
     Dosage: UNK
     Dates: start: 20010405
  2. LACTULOSE [Concomitant]
     Dosage: UNK
  3. PIOGLITAZONE [Concomitant]
     Dosage: 15 MG, MORNING
     Route: 048
  4. ACCUPRIL [Concomitant]
     Dosage: 300 MG, UNK
     Route: 048
  5. TERAZOSIN [Concomitant]
     Dosage: 1 MG, UNK
     Route: 048
  6. FLUOXETINE [Concomitant]
     Dosage: 20 MG, UNK
     Route: 048
     Dates: start: 20100420
  7. SIMVASTATIN [Concomitant]
     Dosage: 20 MG, MORNING
     Route: 048
  8. METFORMIN [Concomitant]
     Dosage: 850 MG, BID
     Route: 048

REACTIONS (7)
  - Abdominal discomfort [Recovered/Resolved]
  - Abdominal pain upper [Unknown]
  - Hepatic steatosis [Not Recovered/Not Resolved]
  - Abdominal pain [Recovered/Resolved]
  - Constipation [Not Recovered/Not Resolved]
  - Type 2 diabetes mellitus [Not Recovered/Not Resolved]
  - White blood cell count increased [Recovered/Resolved]
